FAERS Safety Report 13967037 (Version 1)
Quarter: 2017Q3

REPORT INFORMATION
  Report Type: Spontaneous
  Country: US (occurrence: US)
  Receive Date: 20170914
  Receipt Date: 20170914
  Transmission Date: 20171128
  Serious: No
  Sender: FDA-Public Use
  Company Number: US-009507513-1709USA000570

PATIENT
  Age: 22 Year
  Sex: Female
  Weight: 67.57 kg

DRUGS (1)
  1. NEXPLANON [Suspect]
     Active Substance: ETONOGESTREL
     Indication: CONTRACEPTION
     Dosage: EVERY 3 YEARS LEFT ARM
     Route: 059

REACTIONS (4)
  - Vomiting [Unknown]
  - Hypomenorrhoea [Unknown]
  - Menorrhagia [Unknown]
  - Headache [Unknown]

NARRATIVE: CASE EVENT DATE: 201703
